FAERS Safety Report 26024258 (Version 1)
Quarter: 2025Q4

REPORT INFORMATION
  Report Type: Spontaneous
  Country: JP (occurrence: JP)
  Receive Date: 20251111
  Receipt Date: 20251111
  Transmission Date: 20260117
  Serious: Yes (Other)
  Sender: ROCHE
  Company Number: JP-ROCHE-10000427224

PATIENT
  Age: 63 Year
  Sex: Male

DRUGS (2)
  1. ATEZOLIZUMAB [Suspect]
     Active Substance: ATEZOLIZUMAB
     Indication: Hepatocellular carcinoma
     Route: 042
  2. BEVACIZUMAB [Suspect]
     Active Substance: BEVACIZUMAB
     Indication: Hepatocellular carcinoma
     Dosage: BODY WEIGHT EVERY 3 WEEKS WAS STARTED
     Route: 042

REACTIONS (4)
  - Gastric ulcer haemorrhage [Unknown]
  - Adrenocorticotropic hormone deficiency [Unknown]
  - Hypothyroidism [Unknown]
  - Myopathy [Unknown]
